FAERS Safety Report 5676421-6 (Version None)
Quarter: 2008Q1

REPORT INFORMATION
  Report Type: 
  Country: None (occurrence: None)
  Receive Date: 20080321
  Receipt Date: 20080317
  Transmission Date: 20080703
  Serious: Yes (Other)
  Sender: FDA-Public Use
  Company Number: AU-PFIZER INC-2008025183

PATIENT
  Sex: Male

DRUGS (1)
  1. CELEBREX [Suspect]
     Indication: SCIATICA

REACTIONS (3)
  - HALLUCINATION [None]
  - HANGOVER [None]
  - INCORRECT DOSE ADMINISTERED [None]
